FAERS Safety Report 6978331-0 (Version None)
Quarter: 2010Q3

REPORT INFORMATION
  Report Type: 
  Country: None (occurrence: None)
  Receive Date: 20100913
  Receipt Date: 20100908
  Transmission Date: 20110219
  Serious: No
  Sender: FDA-Public Use
  Company Number: US-SANOFI-AVENTIS-2010SA039090

PATIENT
  Age: 28 Year
  Sex: Female
  Weight: 75.3 kg

DRUGS (6)
  1. ARAVA [Suspect]
     Indication: RHEUMATOID ARTHRITIS
     Route: 048
     Dates: start: 20090318, end: 20100702
  2. CENTRUM [Concomitant]
     Dosage: 1 TABLET
     Route: 048
  3. SULFASALAZINE [Concomitant]
     Route: 048
  4. MEDROXYPROGESTERONE ACETATE [Concomitant]
     Dosage: EVERY 3 MONTHS
  5. CALTRATE +D [Concomitant]
  6. PREDNISONE [Concomitant]
     Route: 048

REACTIONS (1)
  - DRUG EXPOSURE DURING PREGNANCY [None]
